FAERS Safety Report 19520285 (Version 2)
Quarter: 2022Q1

REPORT INFORMATION
  Report Type: Spontaneous
  Country: GB (occurrence: GB)
  Receive Date: 20210712
  Receipt Date: 20220330
  Transmission Date: 20220423
  Serious: Yes (Hospitalization)
  Sender: FDA-Public Use
  Company Number: None

PATIENT
  Age: 72 Year
  Sex: Male
  Weight: 97 kg

DRUGS (6)
  1. CIPROFLOXACIN [Suspect]
     Active Substance: CIPROFLOXACIN
     Indication: Post procedural infection
     Dosage: 250 MILLIGRAM, QD (250 MG ONCE A DAY)
     Route: 048
     Dates: start: 20210609, end: 20210613
  2. CIPROFLOXACIN [Suspect]
     Active Substance: CIPROFLOXACIN
     Indication: Ill-defined disorder
  3. FELODIPINE [Concomitant]
     Active Substance: FELODIPINE
     Indication: Ill-defined disorder
     Dosage: UNK
  4. METFORMIN HYDROCHLORIDE [Concomitant]
     Active Substance: METFORMIN HYDROCHLORIDE
     Indication: Ill-defined disorder
     Dosage: UNK
  5. RAMIPRIL [Concomitant]
     Active Substance: RAMIPRIL
     Indication: Ill-defined disorder
     Dosage: UNK
  6. SIMVASTATIN [Concomitant]
     Active Substance: SIMVASTATIN
     Indication: Ill-defined disorder
     Dosage: UNK

REACTIONS (5)
  - Asthenia [Recovered/Resolved]
  - Dizziness [Recovered/Resolved]
  - Gait disturbance [Recovered/Resolved]
  - Balance disorder [Recovered/Resolved]
  - Muscular weakness [Recovered/Resolved]

NARRATIVE: CASE EVENT DATE: 20210611
